FAERS Safety Report 6013944-4 (Version None)
Quarter: 2008Q4

REPORT INFORMATION
  Report Type: 
  Country: None (occurrence: None)
  Receive Date: 20081216
  Receipt Date: 20071204
  Transmission Date: 20090506
  Serious: Yes (Hospitalization)
  Sender: FDA-Public Use
  Company Number: US-WYE-H01592807

PATIENT
  Age: 49 Year
  Sex: Female

DRUGS (6)
  1. EFFEXOR XR [Suspect]
     Indication: DEPRESSION
     Dosage: DOSE AND FREQUENCY UNSPECIFIED, ORAL ; 150 MG 1X PER 1 DAY, ORAL
     Route: 048
     Dates: end: 20071101
  2. EFFEXOR XR [Suspect]
     Indication: DEPRESSION
     Dosage: DOSE AND FREQUENCY UNSPECIFIED, ORAL ; 150 MG 1X PER 1 DAY, ORAL
     Route: 048
     Dates: start: 20070101
  3. PAXIL [Concomitant]
  4. LORTAB (HYDROCODONE BITARTATE/PARACETAMOL) [Concomitant]
  5. REGLAN [Concomitant]
  6. ZANAFLEX [Concomitant]

REACTIONS (2)
  - DELIRIUM [None]
  - DIARRHOEA [None]
